FAERS Safety Report 10691125 (Version 1)
Quarter: 2015Q1

REPORT INFORMATION
  Report Type: Spontaneous
  Country: US (occurrence: US)
  Receive Date: 20150105
  Receipt Date: 20150105
  Transmission Date: 20150720
  Serious: Yes (Hospitalization, Other)
  Sender: FDA-Public Use
  Company Number: US-PFIZER INC-2014362143

PATIENT
  Age: 35 Year
  Sex: Male
  Weight: 91 kg

DRUGS (2)
  1. CHANTIX [Suspect]
     Active Substance: VARENICLINE TARTRATE
     Indication: SMOKING CESSATION THERAPY
     Dosage: UNK
     Dates: start: 201303, end: 2013
  2. PHILLIPS /00061602/ [Concomitant]
     Dosage: UNK

REACTIONS (2)
  - Spinal disorder [Unknown]
  - Lower respiratory tract infection [Recovered/Resolved]

NARRATIVE: CASE EVENT DATE: 201304
